FAERS Safety Report 20760275 (Version 2)
Quarter: 2022Q3

REPORT INFORMATION
  Report Type: Spontaneous
  Country: US (occurrence: US)
  Receive Date: 20220428
  Receipt Date: 20220721
  Transmission Date: 20221027
  Serious: No
  Sender: FDA-Public Use
  Company Number: US-ENDO PHARMACEUTICALS INC-2022-000963

PATIENT
  Sex: Female

DRUGS (3)
  1. QWO [Suspect]
     Active Substance: COLLAGENASE CLOSTRIDIUM HISTOLYTICUM-AAES
     Indication: Cellulite
     Dosage: 1.84 MG, UNKNOWN, (TREATMENT ONE)
     Route: 065
     Dates: start: 20211101
  2. QWO [Suspect]
     Active Substance: COLLAGENASE CLOSTRIDIUM HISTOLYTICUM-AAES
     Dosage: 0.92 MG, UNKNOWN, (TREATMENT TWO)
     Route: 065
     Dates: start: 20211122
  3. QWO [Suspect]
     Active Substance: COLLAGENASE CLOSTRIDIUM HISTOLYTICUM-AAES
     Dosage: 0.92 MG, UNKNOWN, (TREATMENT THREE)
     Route: 065
     Dates: start: 20211213

REACTIONS (1)
  - Cellulite [Not Recovered/Not Resolved]

NARRATIVE: CASE EVENT DATE: 20210101
